FAERS Safety Report 8259574 (Version 2)
Quarter: 2013Q4

REPORT INFORMATION
  Report Type: Spontaneous
  Country: US (occurrence: US)
  Receive Date: 20111122
  Receipt Date: 20131203
  Transmission Date: 20140711
  Serious: Yes (Other)
  Sender: FDA-Public Use
  Company Number: US-GLAXOSMITHKLINE-A0915682A

PATIENT
  Age: 42 Year
  Sex: Male

DRUGS (1)
  1. ROSIGLITAZONE MALEATE [Suspect]
     Indication: DIABETES MELLITUS
     Dosage: 8MG PER DAY
     Route: 048
     Dates: start: 200110, end: 200402

REACTIONS (6)
  - Cardiac failure congestive [Not Recovered/Not Resolved]
  - Thrombosis [Unknown]
  - Myocardial infarction [Unknown]
  - Weight increased [Unknown]
  - Hypoaesthesia [Unknown]
  - Cardiomyopathy [Unknown]
